FAERS Safety Report 4815149-9 (Version None)
Quarter: 2005Q4

REPORT INFORMATION
  Report Type: 
  Country: None (occurrence: None)
  Receive Date: 20051026
  Receipt Date: 20051010
  Transmission Date: 20060501
  Serious: Yes (Hospitalization)
  Sender: FDA-Public Use
  Company Number: 230014M05DEU

PATIENT
  Age: 29 Year
  Sex: Male

DRUGS (1)
  1. REBIF [Suspect]
     Indication: MULTIPLE SCLEROSIS
     Dosage: 44 MCG, 3 IN 1 WEEKS, SUBCUTANEOUS
     Route: 058
     Dates: start: 20050209, end: 20050217

REACTIONS (15)
  - ACUTE PSYCHOSIS [None]
  - AMNESTIC DISORDER [None]
  - APATHY [None]
  - AUTISM [None]
  - DELUSION [None]
  - DEPENDENCE [None]
  - DRUG ABUSER [None]
  - EMOTIONAL DISORDER [None]
  - HIGH RISK SEXUAL BEHAVIOUR [None]
  - INJURY [None]
  - MULTIPLE SCLEROSIS RELAPSE [None]
  - PARANOIA [None]
  - PERSONALITY CHANGE DUE TO A GENERAL MEDICAL CONDITION [None]
  - SOCIAL PROBLEM [None]
  - THINKING ABNORMAL [None]
